FAERS Safety Report 12963830 (Version 1)
Quarter: 2016Q4

REPORT INFORMATION
  Report Type: Spontaneous
  Country: US (occurrence: US)
  Receive Date: 20161122
  Receipt Date: 20161122
  Transmission Date: 20170207
  Serious: No
  Sender: FDA-Public Use
  Company Number: US-BAYER-2016-219091

PATIENT
  Age: 43 Year
  Sex: Female

DRUGS (1)
  1. CLIMARA [Suspect]
     Active Substance: ESTRADIOL
     Indication: HORMONE REPLACEMENT THERAPY
     Dosage: 0.075 MG
     Route: 062
     Dates: start: 20161019, end: 201611

REACTIONS (6)
  - Device use issue [None]
  - Inappropriate schedule of drug administration [Unknown]
  - Skin burning sensation [Recovered/Resolved]
  - Product adhesion issue [Unknown]
  - Product physical issue [None]
  - Drug administration error [Recovered/Resolved with Sequelae]

NARRATIVE: CASE EVENT DATE: 201611
